FAERS Safety Report 6903769-7 (Version None)
Quarter: 2010Q3

REPORT INFORMATION
  Report Type: 
  Country: None (occurrence: None)
  Receive Date: 20100804
  Receipt Date: 20081202
  Transmission Date: 20110219
  Serious: No
  Sender: FDA-Public Use
  Company Number: US-PFIZER INC-2008101401

PATIENT
  Sex: Female

DRUGS (3)
  1. LYRICA [Suspect]
  2. TRILEPTAL [Suspect]
  3. CYMBALTA [Suspect]

REACTIONS (1)
  - TREMOR [None]
